FAERS Safety Report 8986658 (Version 1)
Quarter: 2012Q4

REPORT INFORMATION
  Report Type: Spontaneous
  Country: US (occurrence: None)
  Receive Date: 20121219
  Receipt Date: 20121219
  Transmission Date: 20130627
  Serious: Yes (Hospitalization, Other)
  Sender: FDA-Public Use
  Company Number: None

PATIENT
  Age: 57 Year
  Sex: Female
  Weight: 86.18 kg

DRUGS (1)
  1. CHANTIX [Suspect]
     Indication: PREOPERATIVE CARE
     Route: 048
     Dates: start: 20090902, end: 20090908

REACTIONS (2)
  - Depression suicidal [None]
  - Negativism [None]
